FAERS Safety Report 19595171 (Version 1)
Quarter: 2021Q3

REPORT INFORMATION
  Report Type: Spontaneous
  Country: DK (occurrence: DK)
  Receive Date: 20210722
  Receipt Date: 20210722
  Transmission Date: 20211014
  Serious: Yes (Life-Threatening, Hospitalization, Other)
  Sender: FDA-Public Use
  Company Number: DK-FRESENIUS KABI-FK202107604

PATIENT
  Age: 42 Year
  Sex: Female

DRUGS (4)
  1. PACLITAXEL (NOT SPECIFIED) [Suspect]
     Active Substance: PACLITAXEL
     Indication: BREAST CANCER
     Route: 042
     Dates: start: 20210615
  2. PACLITAXEL (NOT SPECIFIED) [Suspect]
     Active Substance: PACLITAXEL
     Route: 042
     Dates: start: 20210706
  3. PREDNISOLONE. [Concomitant]
     Active Substance: PREDNISOLONE
     Indication: PREMEDICATION
     Route: 065
  4. FEXOFENADINE HYDROCHLORIDE. [Concomitant]
     Active Substance: FEXOFENADINE HYDROCHLORIDE
     Indication: PREMEDICATION
     Route: 065

REACTIONS (2)
  - Urticaria [Unknown]
  - Anaphylactic shock [Unknown]
